FAERS Safety Report 8913138 (Version 1)
Quarter: 2012Q4

REPORT INFORMATION
  Report Type: Report from Study
  Country: CA (occurrence: CA)
  Receive Date: 20121119
  Receipt Date: 20121119
  Transmission Date: 20130627
  Serious: Yes (Hospitalization)
  Sender: FDA-Public Use
  Company Number: CA-JNJFOC-20121106695

PATIENT
  Age: 27 Year
  Sex: Male
  Weight: 49.9 kg

DRUGS (4)
  1. REMICADE [Suspect]
     Indication: CROHN^S DISEASE
     Route: 042
     Dates: start: 20071114
  2. HYDROMORPHONE [Concomitant]
     Route: 065
  3. NITRAZEPAM [Concomitant]
     Route: 065
  4. CLONAZEPAM [Concomitant]
     Route: 065

REACTIONS (1)
  - Malnutrition [Not Recovered/Not Resolved]
